FAERS Safety Report 7235275-7 (Version None)
Quarter: 2011Q1

REPORT INFORMATION
  Report Type: 
  Country: None (occurrence: None)
  Receive Date: 20110120
  Receipt Date: 20110110
  Transmission Date: 20110831
  Serious: Yes (Hospitalization, Other)
  Sender: FDA-Public Use
  Company Number: BE-JNJFOC-20100305050

PATIENT
  Sex: Male

DRUGS (6)
  1. TRITACE [Suspect]
     Indication: RENAL FAILURE
  2. INFLIXIMAB [Suspect]
     Indication: CROHN'S DISEASE
     Route: 042
  3. MARCOUMAR [Suspect]
     Indication: ANTIPHOSPHOLIPID SYNDROME
  4. NSAID [Suspect]
     Indication: ILL-DEFINED DISORDER
  5. AMEN [Concomitant]
     Indication: HYPERTENSION
  6. AMLODIPINE [Concomitant]

REACTIONS (4)
  - RENAL FAILURE ACUTE [None]
  - HENOCH-SCHONLEIN PURPURA [None]
  - RENAL TUBULAR NECROSIS [None]
  - GLOMERULONEPHRITIS [None]
